FAERS Safety Report 23871058 (Version 1)
Quarter: 2024Q2

REPORT INFORMATION
  Report Type: Other
  Country: US (occurrence: None)
  Receive Date: 20240518
  Receipt Date: 20240518
  Transmission Date: 20240716
  Serious: Yes (Other)
  Sender: FDA-Public Use
  Company Number: US-ROCHE-3564928

PATIENT
  Age: 70 Year
  Sex: Male

DRUGS (2)
  1. RITUXIMAB [Suspect]
     Active Substance: RITUXIMAB
     Indication: Follicular lymphoma
     Route: 065
  2. CISPLATIN [Concomitant]
     Active Substance: CISPLATIN

REACTIONS (2)
  - Disease progression [Unknown]
  - Papilloma viral infection [Unknown]
